FAERS Safety Report 19494192 (Version 3)
Quarter: 2021Q3

REPORT INFORMATION
  Report Type: Spontaneous
  Country: US (occurrence: US)
  Receive Date: 20210706
  Receipt Date: 20210709
  Transmission Date: 20211014
  Serious: No
  Sender: FDA-Public Use
  Company Number: US-GLAXOSMITHKLINE-USCH2021AMR042084

PATIENT
  Sex: Male
  Weight: 81.65 kg

DRUGS (2)
  1. ADVIL [Suspect]
     Active Substance: IBUPROFEN
     Indication: HEADACHE
     Dosage: UNK
  2. PFIZER?BIONTECH COVID?19 VACCINE [Suspect]
     Active Substance: TOZINAMERAN
     Indication: PRODUCT USED FOR UNKNOWN INDICATION
     Dosage: UNK
     Dates: start: 20210615

REACTIONS (14)
  - Headache [Unknown]
  - Erythema [Recovered/Resolved]
  - Therapeutic product effect incomplete [Unknown]
  - Dyspnoea [Unknown]
  - Rash [Unknown]
  - Asthenia [Unknown]
  - Chills [Unknown]
  - Vision blurred [Unknown]
  - Body temperature fluctuation [Unknown]
  - Feeling cold [Unknown]
  - Night sweats [Unknown]
  - Contusion [Unknown]
  - Cough [Unknown]
  - Product complaint [Unknown]
